FAERS Safety Report 8169973 (Version 4)
Quarter: 2013Q4

REPORT INFORMATION
  Report Type: Spontaneous
  Country: FR (occurrence: None)
  Receive Date: 20110923
  Receipt Date: 20131101
  Transmission Date: 20140711
  Serious: Yes (Life-Threatening, Hospitalization)
  Sender: FDA-Public Use
  Company Number: US-2011-10679

PATIENT
  Age: 41 Year
  Sex: Male
  Weight: 77 kg

DRUGS (3)
  1. BUSULFEX [Suspect]
     Indication: BONE MARROW CONDITIONING REGIMEN
     Dosage: 3.2 MG/KG, DAILY DOSE, INTRAVENOUS
     Route: 042
     Dates: start: 20110816, end: 20110819
  2. CYCLOPHOSPHAMIDE (CYCLOPHOSPHAMIDE) [Suspect]
     Indication: BONE MARROW CONDITIONING REGIMEN
     Dosage: 60 MG/KG, QD
     Dates: start: 20110821, end: 20110822
  3. CICLOSPORIN (CICLOSPORIN) [Concomitant]

REACTIONS (19)
  - Septic shock [None]
  - Cholangitis [None]
  - Renal failure [None]
  - Bone marrow failure [None]
  - Mucosal inflammation [None]
  - Acute respiratory distress syndrome [None]
  - Left ventricular dysfunction [None]
  - Staphylococcal infection [None]
  - Jaundice [None]
  - Multi-organ failure [None]
  - Confusional state [None]
  - Somnolence [None]
  - Miosis [None]
  - Overdose [None]
  - Bile duct stone [None]
  - Blood culture positive [None]
  - Bacterial infection [None]
  - Cholestasis [None]
  - Pseudomonas infection [None]
